FAERS Safety Report 21035977 (Version 1)
Quarter: 2022Q3

REPORT INFORMATION
  Report Type: Other
  Country: PL (occurrence: PL)
  Receive Date: 20220701
  Receipt Date: 20220701
  Transmission Date: 20221026
  Serious: Yes (Death)
  Sender: FDA-Public Use
  Company Number: None

PATIENT
  Age: 57 Year
  Sex: Male
  Weight: 150 kg

DRUGS (2)
  1. OMNIPAQUE [Suspect]
     Active Substance: IOHEXOL
     Indication: Medical procedure
     Dosage: 140 ML, SINGLE
     Route: 042
     Dates: start: 20220606, end: 20220606
  2. OMNIPAQUE [Suspect]
     Active Substance: IOHEXOL
     Indication: Renal disorder

REACTIONS (3)
  - Altered state of consciousness [Fatal]
  - Dyspnoea [Fatal]
  - Cardiac arrest [Fatal]

NARRATIVE: CASE EVENT DATE: 20220606
